FAERS Safety Report 7794864-1 (Version None)
Quarter: 2011Q4

REPORT INFORMATION
  Report Type: 
  Country: None (occurrence: None)
  Receive Date: 20111004
  Receipt Date: 20110923
  Transmission Date: 20120403
  Serious: Yes (Other)
  Sender: FDA-Public Use
  Company Number: PHHY2011NO84836

PATIENT
  Age: 8 Year
  Sex: Male

DRUGS (2)
  1. DIPHTHERIA,PERTUSSIS,TETANUS,POLIOMYELIT [Suspect]
     Dosage: UNK UKN, UNK
     Dates: start: 20110922
  2. RITALIN [Suspect]
     Dosage: 20 MG, UNK

REACTIONS (3)
  - HALLUCINATION [None]
  - AKATHISIA [None]
  - POISONING [None]
